FAERS Safety Report 6195904-6 (Version None)
Quarter: 2009Q2

REPORT INFORMATION
  Report Type: 
  Country: None (occurrence: None)
  Receive Date: 20090520
  Receipt Date: 20090513
  Transmission Date: 20091009
  Serious: Yes (Other)
  Sender: FDA-Public Use
  Company Number: US-BAXTER-2009BH006153

PATIENT

DRUGS (3)
  1. POLYGAM S/D [Suspect]
     Indication: PULMONARY HAEMORRHAGE
     Route: 065
  2. POLYGAM S/D [Suspect]
     Indication: DERMATOMYOSITIS
     Route: 065
  3. POLYGAM S/D [Suspect]
     Indication: OFF LABEL USE
     Route: 065

REACTIONS (2)
  - ANAPHYLACTOID REACTION [None]
  - DRUG INTOLERANCE [None]
